FAERS Safety Report 21177938 (Version 2)
Quarter: 2022Q3

REPORT INFORMATION
  Report Type: Report from Study
  Country: DE (occurrence: DE)
  Receive Date: 20220805
  Receipt Date: 20220906
  Transmission Date: 20221026
  Serious: Yes (Hospitalization)
  Sender: FDA-Public Use
  Company Number: DE-MYLANLABS-2022M1051591

PATIENT
  Sex: Female

DRUGS (6)
  1. UNSPECIFIED INGREDIENT [Suspect]
     Active Substance: UNSPECIFIED INGREDIENT
     Dosage: NO DOSE GIVEN
  2. CELECOXIB [Suspect]
     Active Substance: CELECOXIB
     Indication: Axial spondyloarthritis
     Dosage: 400 MG
     Dates: start: 20200219, end: 20200615
  3. CELECOXIB [Suspect]
     Active Substance: CELECOXIB
     Dosage: 400 MG
     Dates: start: 20200219
  4. ACEMETACIN [Suspect]
     Active Substance: ACEMETACIN
     Indication: Axial spondyloarthritis
     Dosage: 180 MG
     Dates: start: 20170720
  5. ACEMETACIN [Suspect]
     Active Substance: ACEMETACIN
     Dosage: 90 MG
     Dates: start: 20200715
  6. ACEMETACIN [Suspect]
     Active Substance: ACEMETACIN
     Dosage: 90 MG
     Dates: start: 20170720, end: 20200210

REACTIONS (2)
  - Spinal osteoarthritis [Unknown]
  - Fibromyalgia [Unknown]

NARRATIVE: CASE EVENT DATE: 20200310
